FAERS Safety Report 8515793 (Version 7)
Quarter: 2012Q4

REPORT INFORMATION
  Report Type: 
  Country: US (occurrence: US)
  Receive Date: 20120417
  Receipt Date: 20121122
  Transmission Date: 20130627
  Serious: Yes (Other)
  Sender: FDA-Public Use
  Company Number: US-PFIZER INC-2012091763

PATIENT
  Age: 78 Year
  Sex: Female
  Weight: 68 kg

DRUGS (18)
  1. XALATAN [Suspect]
     Indication: GLAUCOMA BOTH EYES
     Dosage: one drop in both eyes, once daily
     Route: 047
     Dates: start: 2012
  2. LATANOPROST [Suspect]
     Indication: GLAUCOMA BOTH EYES
     Dosage: one drop in both the eyes, 1x/day
     Route: 047
  3. LATANOPROST [Suspect]
  4. ISTALOL [Concomitant]
     Indication: GLAUCOMA BOTH EYES
     Dosage: UNK, 2x/day
     Route: 047
  5. CELEXA [Concomitant]
     Dosage: UNK
  6. CARTIA XT [Concomitant]
     Dosage: 240mg
  7. FUROSEMIDE [Concomitant]
     Dosage: 20 mg, 1x/day
  8. NORTRIPTYLINE [Concomitant]
     Dosage: 10 mg, UNK
  9. ENALAPRIL [Concomitant]
     Dosage: 20 mg
  10. ENALAPRIL [Concomitant]
     Dosage: UNK
  11. POTASSIUM CHLORIDE [Concomitant]
     Dosage: UNK
  12. PRILOSEC [Concomitant]
     Dosage: UNK
  13. PRILOSEC [Concomitant]
     Dosage: UNK
  14. XANAX [Concomitant]
     Indication: MUSCLE DISORDER
     Dosage: 0.5 mg, 4x/day tablet
  15. TYLENOL W/CODEINE NO. 3 [Concomitant]
     Dosage: UNK, as needed
  16. CARDIZEM [Concomitant]
     Indication: BLOOD PRESSURE HIGH
     Dosage: UNK
  17. BABY ASPIRIN [Concomitant]
     Dosage: 81 mg, UNK
  18. CALCIUM [Concomitant]
     Dosage: UNK

REACTIONS (5)
  - Drug ineffective [Unknown]
  - Drug effect incomplete [Unknown]
  - Intraocular pressure test abnormal [Unknown]
  - Intraocular pressure increased [Recovered/Resolved]
  - Eyelid ptosis [Recovered/Resolved]
